FAERS Safety Report 5109368-4 (Version None)
Quarter: 2006Q3

REPORT INFORMATION
  Report Type: 
  Country: None (occurrence: None)
  Receive Date: 20060920
  Receipt Date: 20050927
  Transmission Date: 20061208
  Serious: Yes (Life-Threatening)
  Sender: FDA-Public Use
  Company Number: FR-BRISTOL-MYERS SQUIBB COMPANY-13125703

PATIENT
  Age: 53 Year
  Sex: Male

DRUGS (5)
  1. ZERIT [Suspect]
     Indication: HIV INFECTION
     Route: 048
     Dates: start: 20050427, end: 20050816
  2. EPIVIR [Suspect]
     Indication: HIV INFECTION
     Dates: start: 20050117, end: 20050817
  3. DEPAKENE [Concomitant]
     Dates: start: 20050101, end: 20050820
  4. PYRIMETHAMINE TAB [Concomitant]
  5. DALACINE [Concomitant]

REACTIONS (15)
  - ADRENAL INSUFFICIENCY [None]
  - ASTHENIA [None]
  - BLOOD CHLORIDE DECREASED [None]
  - CHOLESTASIS [None]
  - CONVULSION [None]
  - HEPATIC FAILURE [None]
  - HYPERKALAEMIA [None]
  - HYPONATRAEMIA [None]
  - MITOCHONDRIAL CYTOPATHY [None]
  - PANCREATITIS [None]
  - PLEURAL EFFUSION [None]
  - RENAL FAILURE ACUTE [None]
  - SOMNOLENCE [None]
  - THROMBOCYTOPENIA [None]
  - WEIGHT DECREASED [None]
